FAERS Safety Report 5210475-6 (Version None)
Quarter: 2007Q1

REPORT INFORMATION
  Report Type: 
  Country: None (occurrence: None)
  Receive Date: 20070116
  Receipt Date: 20070116
  Transmission Date: 20070707
  Serious: Yes (Hospitalization)
  Sender: FDA-Public Use
  Company Number: None

PATIENT
  Sex: Male
  Weight: 81 kg

DRUGS (15)
  1. IRINOTECAN HCL [Suspect]
     Indication: OESOPHAGEAL CANCER METASTATIC
     Dosage: 50MG IV
     Route: 042
     Dates: start: 20061024, end: 20061212
  2. CISPLATIN [Suspect]
     Indication: OESOPHAGEAL CANCER METASTATIC
     Dosage: 25MG IV
     Route: 042
     Dates: start: 20061024, end: 20061212
  3. DOCETAXEL (30MG/M2) D1, D8/28 D CYCLE [Suspect]
     Indication: OESOPHAGEAL CANCER METASTATIC
     Dosage: 30MG IV
     Route: 042
     Dates: start: 20061024, end: 20061212
  4. AVASTIN [Suspect]
     Indication: OESOPHAGEAL CANCER METASTATIC
     Dosage: 10MG Q3WKS IV
     Route: 042
     Dates: start: 20061024, end: 20061205
  5. ZOFRAN [Concomitant]
  6. ATIVAN [Concomitant]
  7. AVELOX [Concomitant]
  8. BACLOFEN [Concomitant]
  9. COLACE [Concomitant]
  10. DECADRON [Concomitant]
  11. LACTULOSE [Concomitant]
  12. METOCLOPRAMIDE [Concomitant]
  13. PERCOCET [Concomitant]
  14. SENNA [Concomitant]
  15. SIMETHICONE [Concomitant]

REACTIONS (5)
  - COLONIC PSEUDO-OBSTRUCTION [None]
  - CONSTIPATION [None]
  - DEHYDRATION [None]
  - FAECALOMA [None]
  - ILEUS [None]
